FAERS Safety Report 7044455-5 (Version None)
Quarter: 2010Q4

REPORT INFORMATION
  Report Type: 
  Country: None (occurrence: None)
  Receive Date: 20101014
  Receipt Date: 20101004
  Transmission Date: 20110411
  Serious: Yes (Hospitalization, Other)
  Sender: FDA-Public Use
  Company Number: US-US-EMD SERONO, INC.-7015017

PATIENT
  Sex: Male
  Weight: 91 kg

DRUGS (3)
  1. REBIF [Suspect]
     Indication: MULTIPLE SCLEROSIS
     Route: 058
     Dates: start: 20070626
  2. VITAMIN B-12 [Concomitant]
     Indication: VITAMIN B12 DEFICIENCY
  3. MULTI-VITAMINS [Concomitant]

REACTIONS (5)
  - LYMPHOCYTE MORPHOLOGY ABNORMAL [None]
  - MULTIPLE SCLEROSIS RELAPSE [None]
  - MUSCULAR WEAKNESS [None]
  - ROTATOR CUFF SYNDROME [None]
  - WHITE BLOOD CELL COUNT INCREASED [None]
